FAERS Safety Report 7675808-X (Version None)
Quarter: 2011Q3

REPORT INFORMATION
  Report Type: 
  Country: None (occurrence: None)
  Receive Date: 20110810
  Receipt Date: 20110802
  Transmission Date: 20111222
  Serious: Yes (Other)
  Sender: FDA-Public Use
  Company Number: US-ASTRAZENECA-2011SE46408

PATIENT
  Age: 75 Year
  Sex: Male

DRUGS (1)
  1. NEXIUM [Suspect]
     Route: 048

REACTIONS (6)
  - BLINDNESS [None]
  - EMPHYSEMA [None]
  - FALL [None]
  - JOINT INJURY [None]
  - ASTHENIA [None]
  - HIATUS HERNIA [None]
